FAERS Safety Report 25605335 (Version 1)
Quarter: 2025Q3

REPORT INFORMATION
  Report Type: Spontaneous
  Country: IN (occurrence: IN)
  Receive Date: 20250725
  Receipt Date: 20250725
  Transmission Date: 20251020
  Serious: Yes (Life-Threatening, Hospitalization)
  Sender: ACCORD
  Company Number: IN-Accord-495621

PATIENT
  Age: 86 Year
  Sex: Female

DRUGS (2)
  1. METHOTREXATE [Suspect]
     Active Substance: METHOTREXATE
     Indication: Rheumatoid arthritis
     Dosage: PRESCRIBED MTX 15 MG ONCE DAILY
  2. FOLIC ACID [Concomitant]
     Active Substance: FOLIC ACID
     Indication: Rheumatoid arthritis
     Dosage: TWICE WEEKLY

REACTIONS (7)
  - Product prescribing error [Unknown]
  - Overdose [Unknown]
  - Accidental poisoning [Unknown]
  - Oral mucosa erosion [Recovered/Resolved]
  - Lip erosion [Recovered/Resolved]
  - Infection [Recovered/Resolved]
  - Pancytopenia [Recovered/Resolved]
